FAERS Safety Report 4370284-7 (Version None)
Quarter: 2004Q2

REPORT INFORMATION
  Report Type: 
  Country: None (occurrence: None)
  Receive Date: 20040603
  Receipt Date: 20040405
  Transmission Date: 20050107
  Serious: No
  Sender: FDA-Public Use
  Company Number: US-BRISTOL-MYERS SQUIBB COMPANY-12551578

PATIENT
  Age: 29 Year
  Sex: Male
  Weight: 75 kg

DRUGS (2)
  1. ABILIFY [Suspect]
     Indication: SCHIZOPHRENIA, PARANOID TYPE
  2. ABILIFY [Suspect]
     Indication: PSYCHOTIC DISORDER

REACTIONS (3)
  - EYE MOVEMENT DISORDER [None]
  - EYE PAIN [None]
  - PHOTOPHOBIA [None]
